FAERS Safety Report 12439001 (Version 1)
Quarter: 2016Q2

REPORT INFORMATION
  Report Type: Spontaneous
  Country: KR (occurrence: KR)
  Receive Date: 20160606
  Receipt Date: 20160606
  Transmission Date: 20160815
  Serious: Yes (Other)
  Sender: FDA-Public Use
  Company Number: KR-ELITE LABORATORIES INC.-2016ELT00004

PATIENT
  Sex: Female

DRUGS (1)
  1. PHENDIMETRAZINE [Suspect]
     Active Substance: PHENDIMETRAZINE
     Indication: WEIGHT DECREASED
     Dosage: 35 MG, 2X/DAY
     Route: 065

REACTIONS (5)
  - Macular oedema [None]
  - Retinal vein occlusion [Recovered/Resolved]
  - Blood pressure increased [Recovered/Resolved]
  - Chest discomfort [None]
  - Headache [None]
